FAERS Safety Report 7894301-2 (Version None)
Quarter: 2011Q4

REPORT INFORMATION
  Report Type: 
  Country: None (occurrence: None)
  Receive Date: 20111104
  Receipt Date: 20111028
  Transmission Date: 20120403
  Serious: Yes (Other)
  Sender: FDA-Public Use
  Company Number: AU-ABBOTT-11P-008-0870488-00

PATIENT
  Age: 16 Year
  Sex: Male

DRUGS (2)
  1. FLUOXETINE HCL [Interacting]
     Indication: PRODUCT USED FOR UNKNOWN INDICATION
  2. VALPROATE SODIUM [Suspect]
     Indication: PRODUCT USED FOR UNKNOWN INDICATION

REACTIONS (7)
  - AGITATION [None]
  - RESTLESSNESS [None]
  - ANXIETY [None]
  - AKATHISIA [None]
  - ENERGY INCREASED [None]
  - HOMICIDE [None]
  - DRUG INTERACTION [None]
